FAERS Safety Report 11659387 (Version 1)
Quarter: 2015Q4

REPORT INFORMATION
  Report Type: Spontaneous
  Country: None (occurrence: None)
  Receive Date: 20151023
  Receipt Date: 20151023
  Transmission Date: 20160304
  Serious: No
  Sender: FDA-Public Use
  Company Number: None

PATIENT
  Age: 29 Year
  Sex: Female
  Weight: 52.62 kg

DRUGS (5)
  1. LEXAPRO [Concomitant]
     Active Substance: ESCITALOPRAM OXALATE
  2. AMOXICILLIN 500 MG [Suspect]
     Active Substance: AMOXICILLIN
     Indication: SINUSITIS
     Dosage: 2 PILLS?TWICE ?TAKEN BY MOUTH?
     Route: 048
     Dates: start: 20151015, end: 20151021
  3. IRON SUPPLEMENT [Concomitant]
     Active Substance: IRON
  4. AMOXICILLIN 500 MG [Suspect]
     Active Substance: AMOXICILLIN
     Indication: EAR INFECTION
     Dosage: 2 PILLS?TWICE ?TAKEN BY MOUTH?
     Route: 048
     Dates: start: 20151015, end: 20151021
  5. WOMEN;S DAILY MULTIVITAMIN [Concomitant]

REACTIONS (2)
  - Pruritus generalised [None]
  - Paraesthesia [None]

NARRATIVE: CASE EVENT DATE: 20151021
